FAERS Safety Report 5110876-0 (Version None)
Quarter: 2006Q3

REPORT INFORMATION
  Report Type: 
  Country: None (occurrence: None)
  Receive Date: 20060918
  Receipt Date: 20060914
  Transmission Date: 20061208
  Serious: Yes (Hospitalization)
  Sender: FDA-Public Use
  Company Number: HQWYE883723AUG06

PATIENT
  Age: 44 Year
  Sex: Female

DRUGS (5)
  1. CEFIXIME CHEWABLE [Suspect]
     Indication: INFECTION
     Dosage: 400 MG 1X PER 1 DAY ORAL
     Route: 048
     Dates: start: 20060716, end: 20060723
  2. NIFLURIL                              (NIFLUMIC ACID, ) [Suspect]
     Dosage: 500 MG 1X PER 1 DAY ORAL
     Route: 048
     Dates: start: 20060716, end: 20060723
  3. FLUCONAZOLE [Concomitant]
  4. VEGETOSERUM (ACONITE TINCTURE/BELLADONNA TINCTURE/CHERRY-LAUREL WATER/ [Concomitant]
  5. TEGRETOL [Concomitant]

REACTIONS (6)
  - DYSPHONIA [None]
  - ERYTHEMA [None]
  - FACE OEDEMA [None]
  - IATROGENIC INJURY [None]
  - PRURITUS [None]
  - URTICARIA [None]
